FAERS Safety Report 18106633 (Version 1)
Quarter: 2020Q3

REPORT INFORMATION
  Report Type: Spontaneous
  Country: US (occurrence: US)
  Receive Date: 20200804
  Receipt Date: 20200804
  Transmission Date: 20201103
  Serious: No
  Sender: FDA-Public Use
  Company Number: US-GLAXOSMITHKLINE-US2020AMR145968

PATIENT
  Sex: Female

DRUGS (2)
  1. WELLBUTRIN XL [Suspect]
     Active Substance: BUPROPION HYDROCHLORIDE
     Indication: PRODUCT USED FOR UNKNOWN INDICATION
     Dosage: 150 MG
     Dates: start: 202005, end: 2020
  2. WELLBUTRIN XL [Suspect]
     Active Substance: BUPROPION HYDROCHLORIDE
     Dosage: 300 MG
     Dates: start: 2020

REACTIONS (9)
  - Hunger [Unknown]
  - Eating disorder [Unknown]
  - Tremor [Unknown]
  - Hypoaesthesia [Unknown]
  - Mydriasis [Unknown]
  - Bruxism [Unknown]
  - Insomnia [Unknown]
  - Vision blurred [Unknown]
  - Dyskinesia [Unknown]

NARRATIVE: CASE EVENT DATE: 2020
